FAERS Safety Report 7139023-0 (Version None)
Quarter: 2010Q4

REPORT INFORMATION
  Report Type: 
  Country: None (occurrence: None)
  Receive Date: 20101206
  Receipt Date: 20101129
  Transmission Date: 20110411
  Serious: Yes (Hospitalization)
  Sender: FDA-Public Use
  Company Number: A0897590A

PATIENT
  Sex: Female

DRUGS (3)
  1. WELLBUTRIN [Suspect]
     Route: 065
  2. NUVIGIL [Suspect]
     Route: 048
  3. CONCERTA [Suspect]
     Route: 065

REACTIONS (1)
  - DRUG INTERACTION [None]
